FAERS Safety Report 4846970-9 (Version None)
Quarter: 2005Q4

REPORT INFORMATION
  Report Type: 
  Country: None (occurrence: None)
  Receive Date: 20051207
  Receipt Date: 20051130
  Transmission Date: 20060501
  Serious: Yes (Hospitalization)
  Sender: FDA-Public Use
  Company Number: US-BRISTOL-MYERS SQUIBB COMPANY-13200340

PATIENT
  Age: 55 Year
  Sex: Female
  Weight: 91 kg

DRUGS (1)
  1. COUMADIN [Suspect]
     Indication: ATRIAL FIBRILLATION
     Dosage: DOSE RANGING FROM 5-7.5 MG

REACTIONS (2)
  - HAEMATOMA [None]
  - SEROMA [None]
